FAERS Safety Report 9643975 (Version 1)
Quarter: 2013Q4

REPORT INFORMATION
  Report Type: Spontaneous
  Country: GB (occurrence: None)
  Receive Date: 20131023
  Receipt Date: 20131023
  Transmission Date: 20140711
  Serious: Yes (Other)
  Sender: FDA-Public Use
  Company Number: GB-DEXPHARM-20130754

PATIENT
  Age: 55 Year
  Sex: Female

DRUGS (2)
  1. OMEPRAZOLE [Suspect]
     Indication: GASTRIC PH DECREASED
     Route: 048
     Dates: start: 20110910, end: 20110912
  2. NAPROXEN [Concomitant]

REACTIONS (2)
  - Feeling abnormal [None]
  - Syncope [None]
